FAERS Safety Report 16619526 (Version 2)
Quarter: 2019Q3

REPORT INFORMATION
  Report Type: Report from Study
  Country: FR (occurrence: FR)
  Receive Date: 20190723
  Receipt Date: 20190730
  Transmission Date: 20191004
  Serious: Yes (Death, Other)
  Sender: FDA-Public Use
  Company Number: FR-JAZZ-2019-FR-010111

PATIENT

DRUGS (4)
  1. MORPHINE [Concomitant]
     Active Substance: MORPHINE
     Indication: PAIN
     Dosage: UNK
     Route: 042
     Dates: end: 20190603
  2. KETAMINE [Concomitant]
     Active Substance: KETAMINE
     Indication: PAIN
     Dosage: UNK
     Dates: end: 20190603
  3. DEFITELIO [Suspect]
     Active Substance: DEFIBROTIDE SODIUM
     Indication: VENOOCCLUSIVE LIVER DISEASE
     Dosage: 312 MG, QID
     Route: 042
     Dates: start: 20180906, end: 20181012
  4. MIDAZOLAM [Concomitant]
     Active Substance: MIDAZOLAM HYDROCHLORIDE
     Indication: PAIN
     Dosage: UNK
     Route: 042
     Dates: end: 20190603

REACTIONS (3)
  - Overdose [Unknown]
  - Acute myeloid leukaemia [Fatal]
  - Disease progression [Fatal]

NARRATIVE: CASE EVENT DATE: 20180906
